FAERS Safety Report 8538894-0 (Version None)
Quarter: 2012Q3

REPORT INFORMATION
  Report Type: 
  Country: None (occurrence: None)
  Receive Date: 20120713
  Receipt Date: 20110725
  Transmission Date: 20120928
  Serious: Yes (Hospitalization)
  Sender: FDA-Public Use
  Company Number: 994326

PATIENT
  Age: 41 Year
  Sex: Female

DRUGS (3)
  1. LORAZEPAM [Concomitant]
  2. FOSPHENYTOIN SODIUM [Concomitant]
  3. PROPOFOL [Suspect]
     Indication: GRAND MAL CONVULSION
     Dosage: NOT REPORTED, UNKNOWN

REACTIONS (2)
  - DRUG WITHDRAWAL CONVULSIONS [None]
  - STATUS EPILEPTICUS [None]
